FAERS Safety Report 6153376-1 (Version None)
Quarter: 2009Q2

REPORT INFORMATION
  Report Type: 
  Country: None (occurrence: None)
  Receive Date: 20090413
  Receipt Date: 20090406
  Transmission Date: 20091009
  Serious: Yes (Other)
  Sender: FDA-Public Use
  Company Number: KR-BRISTOL-MYERS SQUIBB COMPANY-14577068

PATIENT
  Age: 3 Year
  Sex: Male

DRUGS (6)
  1. CYCLOPHOSPHAMIDE [Suspect]
     Indication: BRAIN NEOPLASM MALIGNANT
     Dosage: 1DF=12GRAM/M2,CUMULATIVE DOSE
     Route: 042
  2. ETOPOSIDE [Suspect]
     Indication: BRAIN NEOPLASM MALIGNANT
     Dosage: 1DOSAGE FORM= 3000MG/M SUP(2),CUMULATIVE DOSE
     Route: 042
  3. IFOSFAMIDE [Suspect]
     Indication: BRAIN NEOPLASM MALIGNANT
     Dosage: 1DF=54G/M2,CUMULATIVE DOSE
     Route: 042
  4. VINCRISTINE SULFATE [Suspect]
     Indication: BRAIN NEOPLASM MALIGNANT
  5. ACTINOMYCIN-D [Suspect]
     Indication: BRAIN NEOPLASM MALIGNANT
  6. RADIATION THERAPY [Suspect]
     Indication: BRAIN NEOPLASM MALIGNANT

REACTIONS (1)
  - ACUTE MYELOID LEUKAEMIA [None]
